FAERS Safety Report 7215768-9 (Version None)
Quarter: 2011Q1

REPORT INFORMATION
  Report Type: 
  Country: None (occurrence: None)
  Receive Date: 20110107
  Receipt Date: 20101229
  Transmission Date: 20110831
  Serious: Yes (Life-Threatening, Hospitalization, Other)
  Sender: FDA-Public Use
  Company Number: JP-PFIZER INC-2010112971

PATIENT
  Age: 90 Year
  Sex: Female
  Weight: 39 kg

DRUGS (8)
  1. LYRICA [Suspect]
     Dosage: 50 MG, 2X/DAY
     Route: 048
     Dates: start: 20100709, end: 20100722
  2. CRAVIT [Suspect]
     Indication: URINARY TRACT INFECTION
     Dosage: 250 MG, 1X/DAY
     Route: 048
     Dates: start: 20100807, end: 20100808
  3. LOXONIN [Concomitant]
     Indication: POST HERPETIC NEURALGIA
     Dosage: 60 MG, 1X/DAY
     Route: 048
     Dates: end: 20100808
  4. LYRICA [Suspect]
     Indication: POST HERPETIC NEURALGIA
     Dosage: 75 MG, 2X/DAY
     Route: 048
     Dates: start: 20100701, end: 20100706
  5. LYRICA [Suspect]
     Dosage: 75 MG, 1X/DAY
     Route: 048
     Dates: start: 20100723, end: 20100808
  6. AMOBAN [Suspect]
     Indication: INSOMNIA
     Dosage: 7.5 MG, 1X/DAY
     Route: 048
     Dates: end: 20100808
  7. ASPIRIN [Concomitant]
     Indication: MYOCARDIAL ISCHAEMIA
     Dosage: 100 MG, 1X/DAY
     Route: 048
     Dates: end: 20100808
  8. DOGMATYL [Concomitant]
     Indication: DECREASED APPETITE
     Dosage: 50 MG, 1X/DAY
     Route: 048
     Dates: end: 20100808

REACTIONS (5)
  - BRAIN CONTUSION [None]
  - ACTIVITIES OF DAILY LIVING IMPAIRED [None]
  - FALL [None]
  - URINARY TRACT INFECTION [None]
  - LOSS OF CONSCIOUSNESS [None]
